FAERS Safety Report 7035449-4 (Version None)
Quarter: 2010Q4

REPORT INFORMATION
  Report Type: 
  Country: None (occurrence: None)
  Receive Date: 20101008
  Receipt Date: 20100927
  Transmission Date: 20110411
  Serious: Yes (Other)
  Sender: FDA-Public Use
  Company Number: JP-PFIZER INC-2010111271

PATIENT
  Age: 82 Year
  Sex: Female

DRUGS (6)
  1. LYRICA [Suspect]
     Indication: POST HERPETIC NEURALGIA
     Dosage: 225MG; DAILY
     Route: 048
     Dates: start: 20100706, end: 20100827
  2. LOXONIN [Concomitant]
     Dosage: UNK
     Route: 048
  3. SOLETON [Concomitant]
     Dosage: UNK
     Route: 048
  4. MYONAL [Concomitant]
     Dosage: UNK
     Route: 048
  5. MUCOSTA [Concomitant]
     Dosage: UNK
     Route: 048
  6. HARNIN [Concomitant]
     Dosage: UNK
     Route: 048

REACTIONS (2)
  - ALANINE AMINOTRANSFERASE INCREASED [None]
  - ASPARTATE AMINOTRANSFERASE INCREASED [None]
